FAERS Safety Report 12060885 (Version 1)
Quarter: 2016Q1

REPORT INFORMATION
  Report Type: Spontaneous
  Country: US (occurrence: US)
  Receive Date: 20160210
  Receipt Date: 20160210
  Transmission Date: 20160526
  Serious: No
  Sender: FDA-Public Use
  Company Number: US-MYLANLABS-2015M1039464

PATIENT
  Age: 44 Year
  Sex: Male

DRUGS (1)
  1. METOPROLOL SUCCINATE EXTENDED-RELEASE TABLETS, USP [Suspect]
     Active Substance: METOPROLOL SUCCINATE
     Indication: HEART RATE
     Dosage: 50 MG, QD
     Route: 048
     Dates: start: 201510, end: 20151111

REACTIONS (2)
  - Drug ineffective for unapproved indication [Recovered/Resolved]
  - Feeling abnormal [Recovered/Resolved]

NARRATIVE: CASE EVENT DATE: 201510
